FAERS Safety Report 18896396 (Version 1)
Quarter: 2021Q1

REPORT INFORMATION
  Report Type: Spontaneous
  Country: US (occurrence: US)
  Receive Date: 20210211
  Receipt Date: 20210211
  Transmission Date: 20210420
  Serious: No
  Sender: FDA-Public Use
  Company Number: None

PATIENT
  Age: 39 Year
  Sex: Male
  Weight: 107.05 kg

DRUGS (1)
  1. SUMATRIPTAN (SUMATRIPTAN SUCCINATE 50MG TAB) [Suspect]
     Active Substance: SUMATRIPTAN SUCCINATE
     Indication: PAIN
     Route: 048
     Dates: start: 20201012, end: 20201012

REACTIONS (1)
  - Angina pectoris [None]

NARRATIVE: CASE EVENT DATE: 20201012
